FAERS Safety Report 17016333 (Version 1)
Quarter: 2019Q4

REPORT INFORMATION
  Report Type: Spontaneous
  Country: US (occurrence: US)
  Receive Date: 20191003
  Receipt Date: 20191003
  Transmission Date: 20200122
  Serious: Yes (Hospitalization)
  Sender: FDA-Public Use
  Company Number: None

PATIENT
  Age: 69 Year
  Sex: Male
  Weight: 65.9 kg

DRUGS (4)
  1. 5-FLUOROURACIL (5-FU) [Suspect]
     Active Substance: FLUOROURACIL
     Dates: start: 20190724
  2. XELODA [Suspect]
     Active Substance: CAPECITABINE
     Dates: end: 20190923
  3. LEUCOVORIN CALCIUM. [Suspect]
     Active Substance: LEUCOVORIN CALCIUM
     Dates: end: 20190724
  4. ELOXATIN [Suspect]
     Active Substance: OXALIPLATIN
     Dates: end: 20190724

REACTIONS (11)
  - Fatigue [None]
  - Headache [None]
  - Nausea [None]
  - White blood cell count decreased [None]
  - Septic shock [None]
  - Laboratory test interference [None]
  - Urinary tract infection [None]
  - Pyrexia [None]
  - Dizziness [None]
  - Vomiting [None]
  - Neutropenia [None]

NARRATIVE: CASE EVENT DATE: 20190924
